FAERS Safety Report 7881351-5 (Version None)
Quarter: 2011Q4

REPORT INFORMATION
  Report Type: 
  Country: None (occurrence: None)
  Receive Date: 20111101
  Receipt Date: 20110526
  Transmission Date: 20120403
  Serious: No
  Sender: FDA-Public Use
  Company Number: US-AMGEN-USASP2011027490

PATIENT
  Age: 25 Year
  Weight: 58.957 kg

DRUGS (10)
  1. PROBIOTIC FEMINA [Concomitant]
  2. JUNEL 1.5/30 [Concomitant]
     Dosage: UNK UNK, QD
  3. YEAST                              /00212501/ [Concomitant]
  4. SULINDAC [Concomitant]
     Dosage: 150 MG, UNK
  5. FISH OIL [Concomitant]
  6. ENBREL [Suspect]
     Indication: PRODUCT USED FOR UNKNOWN INDICATION
     Dosage: 50 MG, QWK
  7. FOLIC ACID [Concomitant]
     Dosage: 1 MG, UNK
  8. METHOTREXATE [Concomitant]
     Dosage: 2.5 MG, UNK
  9. GLUCOSAMINE [Concomitant]
  10. CHONDROITIN [Concomitant]

REACTIONS (3)
  - INJECTION SITE REACTION [None]
  - INJECTION SITE URTICARIA [None]
  - INJECTION SITE ERYTHEMA [None]
